FAERS Safety Report 10625250 (Version 6)
Quarter: 2015Q2

REPORT INFORMATION
  Report Type: Spontaneous
  Country: US (occurrence: None)
  Receive Date: 20141201
  Receipt Date: 20150513
  Transmission Date: 20150821
  Serious: Yes (Hospitalization, Other)
  Sender: FDA-Public Use
  Company Number: 2014JUB00202

PATIENT
  Age: 51 Year
  Sex: Female
  Weight: 88.4 kg

DRUGS (5)
  1. ASPIRIN. [Concomitant]
     Active Substance: ASPIRIN
  2. ADCIRCA [Concomitant]
     Active Substance: TADALAFIL
  3. ORENITRAM [Suspect]
     Active Substance: TREPROSTINIL
     Indication: PULMONARY HYPERTENSION
     Route: 048
     Dates: start: 20140730
  4. LETAIRIS [Concomitant]
     Active Substance: AMBRISENTAN
  5. PREDNISONE (PREDNISONE) [Suspect]
     Active Substance: PREDNISONE
     Route: 048
     Dates: start: 20140730

REACTIONS (16)
  - Scoliosis [None]
  - Vomiting [None]
  - Migraine [None]
  - Gastrooesophageal reflux disease [None]
  - Pneumonia aspiration [None]
  - Systemic lupus erythematosus [None]
  - Headache [None]
  - Oesophagitis [None]
  - Myalgia [None]
  - Decreased appetite [None]
  - Oedema [None]
  - Constipation [None]
  - Muscular weakness [None]
  - Scleroderma [None]
  - Muscle spasms [None]
  - Arthralgia [None]

NARRATIVE: CASE EVENT DATE: 2014
